FAERS Safety Report 14610351 (Version 1)
Quarter: 2018Q1

REPORT INFORMATION
  Report Type: Spontaneous
  Country: GB (occurrence: GB)
  Receive Date: 20180307
  Receipt Date: 20180307
  Transmission Date: 20180509
  Serious: Yes (Hospitalization)
  Sender: FDA-Public Use
  Company Number: GB-ALLERGAN-1812646US

PATIENT
  Age: 22 Year
  Sex: Female
  Weight: 68.48 kg

DRUGS (2)
  1. ARIPIPRAZOLE. [Concomitant]
     Active Substance: ARIPIPRAZOLE
     Indication: PRODUCT USED FOR UNKNOWN INDICATION
     Dosage: UNK
     Route: 065
  2. CITALOPRAM HYDROBROMIDE - BP [Suspect]
     Active Substance: CITALOPRAM HYDROBROMIDE
     Indication: BIPOLAR DISORDER
     Dosage: UNK
     Route: 048
     Dates: start: 20150601, end: 20151201

REACTIONS (2)
  - Loss of consciousness [Recovered/Resolved]
  - Off label use [Unknown]

NARRATIVE: CASE EVENT DATE: 20150731
